FAERS Safety Report 18726144 (Version 2)
Quarter: 2021Q1

REPORT INFORMATION
  Report Type: Spontaneous
  Country: US (occurrence: US)
  Receive Date: 20210111
  Receipt Date: 20210215
  Transmission Date: 20210419
  Serious: No
  Sender: FDA-Public Use
  Company Number: US-BAYER-2021-019590

PATIENT
  Age: 31 Year
  Sex: Female
  Weight: 85.26 kg

DRUGS (5)
  1. TACROLIMUS. [Concomitant]
     Active Substance: TACROLIMUS
  2. MIRENA [Suspect]
     Active Substance: LEVONORGESTREL
     Indication: CONTRACEPTION
     Dosage: 20 ?G PER DAY CONTINUOUSLY
     Route: 015
     Dates: start: 202010
  3. LISINOPRIL. [Concomitant]
     Active Substance: LISINOPRIL
  4. PREDNISONE. [Concomitant]
     Active Substance: PREDNISONE
  5. PREGABALIN. [Concomitant]
     Active Substance: PREGABALIN

REACTIONS (2)
  - Device expulsion [Recovered/Resolved]
  - Ovarian germ cell teratoma benign [None]
